FAERS Safety Report 24192027 (Version 1)
Quarter: 2024Q3

REPORT INFORMATION
  Report Type: Spontaneous
  Country: US (occurrence: US)
  Receive Date: 20240809
  Receipt Date: 20240809
  Transmission Date: 20241016
  Serious: Yes (Hospitalization, Other)
  Sender: NOVO NORDISK
  Company Number: US-NOVOPROD-1264108

PATIENT
  Sex: Female

DRUGS (1)
  1. OZEMPIC [Suspect]
     Active Substance: SEMAGLUTIDE
     Indication: Product used for unknown indication
     Dosage: UNK
     Route: 058

REACTIONS (6)
  - Hospitalisation [Unknown]
  - Impaired gastric emptying [Unknown]
  - Condition aggravated [Unknown]
  - Eye disorder [Unknown]
  - Weight increased [Unknown]
  - Blood glucose increased [Unknown]
